FAERS Safety Report 19552445 (Version 1)
Quarter: 2021Q3

REPORT INFORMATION
  Report Type: Spontaneous
  Country: CN (occurrence: CN)
  Receive Date: 20210715
  Receipt Date: 20210715
  Transmission Date: 20211014
  Serious: Yes (Hospitalization, Other)
  Sender: FDA-Public Use
  Company Number: CN-LUPIN PHARMACEUTICALS INC.-2021-11865

PATIENT
  Age: 53 Year
  Sex: Female

DRUGS (6)
  1. POLYENE PHOSPHATIDYLCHOLINE [Concomitant]
     Active Substance: PHOSPHOLIPID
     Indication: NEUROSIS
     Dosage: 15 MILLILITER, QD
     Route: 042
     Dates: start: 201911
  2. ESZOPICLONE. [Interacting]
     Active Substance: ESZOPICLONE
     Indication: CONDITION AGGRAVATED
  3. ESZOPICLONE. [Suspect]
     Active Substance: ESZOPICLONE
     Indication: SLEEP DISORDER
     Dosage: 3 MILLIGRAM, QD
     Route: 048
     Dates: start: 20191122, end: 20191124
  4. TRAZODONE [Interacting]
     Active Substance: TRAZODONE HYDROCHLORIDE
     Indication: NEUROSIS
     Dosage: 150 MILLIGRAM
     Route: 048
     Dates: start: 201805
  5. ZOLPIDEM TARTRATE. [Concomitant]
     Active Substance: ZOLPIDEM TARTRATE
     Indication: SLEEP DISORDER
     Dosage: UNK
     Route: 065
  6. ENTECAVIR. [Interacting]
     Active Substance: ENTECAVIR
     Indication: HEPATITIS B
     Dosage: 0.5 MILLIGRAM, QD
     Route: 048
     Dates: start: 201911

REACTIONS (2)
  - Drug interaction [Unknown]
  - Drug-induced liver injury [Recovering/Resolving]

NARRATIVE: CASE EVENT DATE: 20191124
